FAERS Safety Report 7936700-6 (Version None)
Quarter: 2011Q4

REPORT INFORMATION
  Report Type: 
  Country: None (occurrence: None)
  Receive Date: 20111123
  Receipt Date: 20111114
  Transmission Date: 20120403
  Serious: Yes (Other)
  Sender: FDA-Public Use
  Company Number: JP-PFIZER INC-2011279777

PATIENT
  Age: 42 Year
  Sex: Male

DRUGS (3)
  1. METHYLPREDNISOLONE [Suspect]
     Dosage: 500 MG/DAY
  2. METHYLPREDNISOLONE [Suspect]
     Dosage: 500 MG/DAY
  3. METHYLPREDNISOLONE [Suspect]
     Dosage: 8 MG/DAY

REACTIONS (3)
  - SUICIDE ATTEMPT [None]
  - DEPRESSION [None]
  - MANIA [None]
